FAERS Safety Report 10983255 (Version 1)
Quarter: 2015Q2

REPORT INFORMATION
  Report Type: Spontaneous
  Country: US (occurrence: None)
  Receive Date: 20150402
  Receipt Date: 20150402
  Transmission Date: 20150821
  Serious: Yes (Hospitalization)
  Sender: FDA-Public Use
  Company Number: None

PATIENT
  Age: 88 Year
  Sex: Male
  Weight: 65 kg

DRUGS (9)
  1. WARFARIN [Suspect]
     Active Substance: WARFARIN
     Indication: ATRIAL FIBRILLATION
     Dosage: 1 TABLET
     Route: 048
  2. FUROSEMIDE (LASIX) [Concomitant]
  3. LEVOTHYROXINE (SYNTHROID, LEVOTHROID) [Concomitant]
  4. DEPAKOTE ER [Concomitant]
     Active Substance: DIVALPROEX SODIUM
  5. SIMVASTATIN (ZOCOR) [Concomitant]
  6. ASPIRIN. [Suspect]
     Active Substance: ASPIRIN
     Indication: ATRIAL FIBRILLATION
     Dosage: 1 TABLET
     Route: 048
  7. LISINOPRIL (ZESTRIL) [Concomitant]
  8. DIGOXIN. [Concomitant]
     Active Substance: DIGOXIN
  9. SPIRONOLACTONE (ALDACTONE) [Concomitant]

REACTIONS (3)
  - Epistaxis [None]
  - International normalised ratio increased [None]
  - Coagulopathy [None]

NARRATIVE: CASE EVENT DATE: 20141125
